FAERS Safety Report 6450862-1 (Version None)
Quarter: 2009Q4

REPORT INFORMATION
  Report Type: 
  Country: None (occurrence: None)
  Receive Date: 20091123
  Receipt Date: 20090219
  Transmission Date: 20100525
  Serious: Yes (Other)
  Sender: FDA-Public Use
  Company Number: US-AMGEN-QUU334664

PATIENT
  Sex: Female

DRUGS (2)
  1. ENBREL [Suspect]
     Indication: RHEUMATOID ARTHRITIS
     Route: 058
     Dates: start: 20081231
  2. METHOTREXATE [Concomitant]
     Route: 048

REACTIONS (3)
  - DIVERTICULITIS [None]
  - INJECTION SITE PAIN [None]
  - PYREXIA [None]
